FAERS Safety Report 7751420 (Version 4)
Quarter: 2016Q2

REPORT INFORMATION
  Report Type: Report from Study
  Country: LT (occurrence: LT)
  Receive Date: 20110107
  Receipt Date: 20160511
  Transmission Date: 20160815
  Serious: Yes (Hospitalization)
  Sender: FDA-Public Use
  Company Number: PHHO2010LT19723

PATIENT
  Age: 69 Year
  Sex: Female
  Weight: 68 kg

DRUGS (10)
  1. ENALAPRIL [Suspect]
     Active Substance: ENALAPRIL
     Dosage: 20 MG, QD (RUN IN PHASE)
     Route: 048
     Dates: start: 20101027, end: 20101124
  2. TORASEMIDE [Concomitant]
     Active Substance: TORSEMIDE
     Indication: CARDIAC FAILURE CONGESTIVE
  3. ALISKIREN [Suspect]
     Active Substance: ALISKIREN
     Indication: CARDIAC FAILURE
     Dosage: 150 MG, QD (RUN IN PHASE)
     Route: 048
     Dates: start: 20101110, end: 20101124
  4. SPIRONOLACTONE. [Concomitant]
     Active Substance: SPIRONOLACTONE
     Indication: CARDIAC FAILURE CONGESTIVE
  5. ENALAPRIL [Suspect]
     Active Substance: ENALAPRIL
     Dosage: 10 MG, QD (RUN IN PHASE)
     Route: 048
     Dates: start: 20101015, end: 20101026
  6. ATORVASTATIN [Concomitant]
     Active Substance: ATORVASTATIN
     Indication: DYSLIPIDAEMIA
  7. ACETYLSALICYLIC ACID [Concomitant]
     Active Substance: ASPIRIN
  8. THYROXINE [Concomitant]
     Active Substance: LEVOTHYROXINE
  9. ENALAPRIL [Suspect]
     Active Substance: ENALAPRIL
     Dosage: 5 MG, BID
     Route: 048
     Dates: start: 20101125, end: 20101228
  10. METOPROLOL. [Concomitant]
     Active Substance: METOPROLOL
     Indication: CARDIAC FAILURE CONGESTIVE

REACTIONS (6)
  - Cerebrovascular accident [Recovered/Resolved with Sequelae]
  - Headache [Recovered/Resolved with Sequelae]
  - Speech disorder [Recovered/Resolved with Sequelae]
  - Muscular weakness [Recovered/Resolved with Sequelae]
  - Hypotension [Recovered/Resolved with Sequelae]
  - Amnesia [Recovered/Resolved with Sequelae]

NARRATIVE: CASE EVENT DATE: 20101225
